FAERS Safety Report 6856483-0 (Version None)
Quarter: 2010Q3

REPORT INFORMATION
  Report Type: 
  Country: None (occurrence: None)
  Receive Date: 20100716
  Receipt Date: 20100716
  Transmission Date: 20110219
  Serious: Yes (Other)
  Sender: FDA-Public Use
  Company Number: None

PATIENT
  Age: 1 Year
  Sex: Male
  Weight: 10.6 kg

DRUGS (2)
  1. ADVATE [Suspect]
     Indication: FACTOR VIII DEFICIENCY
     Dosage: 623 INTERNATIONAL UNITS X 1 IV BOLUS, ADVATE INFUSIONS
     Route: 040
     Dates: start: 20100506, end: 20100506
  2. ADVATE [Suspect]
     Indication: PROPHYLAXIS
     Dosage: 492 INTERNATIONAL UNITS 1X IV BOLUS; ADVATE INFUSIONS
     Route: 040
     Dates: start: 20100608, end: 20100608

REACTIONS (3)
  - BACTERAEMIA [None]
  - MUSCLE HAEMORRHAGE [None]
  - OTITIS MEDIA [None]
